FAERS Safety Report 5038642-5 (Version None)
Quarter: 2006Q2

REPORT INFORMATION
  Report Type: 
  Country: None (occurrence: None)
  Receive Date: 20060628
  Receipt Date: 20060628
  Transmission Date: 20061013
  Serious: Yes (Life-Threatening)
  Sender: FDA-Public Use
  Company Number: None

PATIENT
  Age: 72 Year
  Sex: Male
  Weight: 62 kg

DRUGS (2)
  1. DIGOXIN [Suspect]
     Dosage: 0.5 MG ON 1/28/06 X 1 DOSE IV
     Route: 042
  2. COREG [Suspect]
     Dosage: 0.25 MG ON 1/29/06 X 1 DOSE IV
     Route: 048

REACTIONS (4)
  - ATRIOVENTRICULAR BLOCK COMPLETE [None]
  - BRADYCARDIA [None]
  - CARDIAC ARREST [None]
  - DIFFICULT TO WEAN FROM VENTILATOR [None]
